FAERS Safety Report 17521115 (Version 1)
Quarter: 2020Q1

REPORT INFORMATION
  Report Type: Spontaneous
  Country: FR (occurrence: FR)
  Receive Date: 20200310
  Receipt Date: 20200310
  Transmission Date: 20200409
  Serious: Yes (Death)
  Sender: FDA-Public Use
  Company Number: FR-009507513-2003FRA001339

PATIENT
  Age: 65 Year
  Sex: Male
  Weight: 55 kg

DRUGS (1)
  1. ZERBAXA [Suspect]
     Active Substance: CEFTOLOZANE SULFATE\TAZOBACTAM SODIUM
     Indication: PSEUDOMONAL BACTERAEMIA
     Dosage: POWDER FOR SOLUTION TO DILUTE FOR  INFUSION
     Route: 041
     Dates: start: 20200209

REACTIONS (2)
  - Hypokalaemia [Fatal]
  - Ileus paralytic [Fatal]

NARRATIVE: CASE EVENT DATE: 20200210
